FAERS Safety Report 16396841 (Version 2)
Quarter: 2020Q3

REPORT INFORMATION
  Report Type: Spontaneous
  Country: CH (occurrence: CH)
  Receive Date: 20190606
  Receipt Date: 20200918
  Transmission Date: 20201102
  Serious: Yes (Life-Threatening, Hospitalization, Other)
  Sender: FDA-Public Use
  Company Number: CH-TEVA-2019-CH-1058844

PATIENT
  Age: 7 Month
  Sex: Male

DRUGS (17)
  1. MODIGRAF [Suspect]
     Active Substance: TACROLIMUS
     Dosage: 12 MILLIGRAM DAILY;
     Route: 065
     Dates: end: 201905
  2. MODIGRAF [Suspect]
     Active Substance: TACROLIMUS
     Dosage: 10 MILLIGRAM DAILY;
     Route: 065
     Dates: start: 201905, end: 201907
  3. VALCYTE [Concomitant]
     Active Substance: VALGANCICLOVIR HYDROCHLORIDE
  4. MAGNESIUM [Concomitant]
     Active Substance: MAGNESIUM
  5. NOPIL [Suspect]
     Active Substance: SULFAMETHOXAZOLE\TRIMETHOPRIM
     Dosage: 200MG/40MG
     Route: 065
  6. ASPIRINE [Concomitant]
     Active Substance: ASPIRIN
  7. CLEXANE [Concomitant]
     Active Substance: ENOXAPARIN SODIUM
  8. TRILEPTAL [Suspect]
     Active Substance: OXCARBAZEPINE
     Dosage: 320 MILLIGRAM DAILY;
     Route: 065
  9. MALTOFER [Concomitant]
  10. MODIGRAF [Suspect]
     Active Substance: TACROLIMUS
     Dosage: 9 MILLIGRAM DAILY;
     Route: 065
     Dates: start: 201907, end: 201910
  11. URSOFALK [Concomitant]
     Active Substance: URSODIOL
  12. AMLODIPINE [Concomitant]
     Active Substance: AMLODIPINE BESYLATE
  13. FLORINEF ACETATE [Concomitant]
     Active Substance: FLUDROCORTISONE ACETATE
  14. VIMPAT [Concomitant]
     Active Substance: LACOSAMIDE
  15. NACL [Concomitant]
     Active Substance: SODIUM CHLORIDE
  16. LEVETIRACETAM. [Suspect]
     Active Substance: LEVETIRACETAM
     Dosage: 440 MILLIGRAM DAILY;
     Route: 065
  17. OMEPRAZOLE. [Suspect]
     Active Substance: OMEPRAZOLE
     Dosage: 10 MILLIGRAM DAILY;
     Route: 065

REACTIONS (4)
  - Partial seizures [Recovered/Resolved]
  - Hyponatraemia [Recovered/Resolved]
  - Hypoaldosteronism [Recovered/Resolved]
  - Cardio-respiratory arrest [Recovered/Resolved]

NARRATIVE: CASE EVENT DATE: 201901
